FAERS Safety Report 4607484-4 (Version None)
Quarter: 2005Q1

REPORT INFORMATION
  Report Type: 
  Country: None (occurrence: None)
  Receive Date: 20050314
  Receipt Date: 20050303
  Transmission Date: 20050727
  Serious: Yes (Hospitalization)
  Sender: FDA-Public Use
  Company Number: FR-JNJFOC-20050105089

PATIENT
  Age: 17 Year
  Sex: Female

DRUGS (5)
  1. MOTILIUM LINGUAL [Suspect]
     Indication: GASTROENTERITIS
     Route: 049
  2. ARESTAL [Suspect]
     Indication: GASTROENTERITIS
     Route: 049
  3. NIFLURIL [Suspect]
     Indication: TORTICOLLIS
  4. DIANE 35 [Concomitant]
  5. DIANE 35 [Concomitant]
     Indication: CONTRACEPTION

REACTIONS (2)
  - ERYTHEMA NODOSUM [None]
  - RASH MACULO-PAPULAR [None]
